FAERS Safety Report 4943602-6 (Version None)
Quarter: 2006Q1

REPORT INFORMATION
  Report Type: 
  Country: None (occurrence: None)
  Receive Date: 20060314
  Receipt Date: 20060306
  Transmission Date: 20060701
  Serious: Yes (Hospitalization, Other)
  Sender: FDA-Public Use
  Company Number: FR-ABBOTT-06P-056-0327121-00

PATIENT
  Sex: Male

DRUGS (2)
  1. HUMIRA [Suspect]
     Indication: CROHN'S DISEASE
     Route: 058
     Dates: start: 20050301
  2. HUMIRA [Suspect]
     Route: 058
     Dates: start: 20051101, end: 20060126

REACTIONS (4)
  - ARTHRALGIA [None]
  - ILEAL PERFORATION [None]
  - INTESTINAL STENOSIS [None]
  - OEDEMA [None]
